FAERS Safety Report 16017493 (Version 1)
Quarter: 2019Q1

REPORT INFORMATION
  Report Type: Spontaneous
  Country: US (occurrence: US)
  Receive Date: 20190201
  Receipt Date: 20190201
  Transmission Date: 20190418
  Serious: No
  Sender: FDA-Public Use
  Company Number: None

PATIENT
  Age: 58 Year
  Sex: Male

DRUGS (2)
  1. STELARA [Suspect]
     Active Substance: USTEKINUMAB
     Indication: PSORIASIS
     Dosage: 1 SYRINGE Q 12 WEEKS SUB-Q
     Route: 058
     Dates: start: 20170531
  2. STELARA [Suspect]
     Active Substance: USTEKINUMAB
     Indication: PSORIATIC ARTHROPATHY
     Dosage: 1 SYRINGE Q 12 WEEKS SUB-Q
     Route: 058
     Dates: start: 20170531

REACTIONS (5)
  - Psoriasis [None]
  - Disease recurrence [None]
  - Pruritus [None]
  - Rotator cuff syndrome [None]
  - Adjustment disorder with depressed mood [None]

NARRATIVE: CASE EVENT DATE: 201901
